FAERS Safety Report 14405160 (Version 1)
Quarter: 2018Q1

REPORT INFORMATION
  Report Type: Spontaneous
  Country: US (occurrence: US)
  Receive Date: 20180118
  Receipt Date: 20180118
  Transmission Date: 20180509
  Serious: No
  Sender: FDA-Public Use
  Company Number: US-JNJFOC-20171227878

PATIENT
  Age: 28 Year
  Sex: Male
  Weight: 79.38 kg

DRUGS (1)
  1. HALDOL DECANOATE [Suspect]
     Active Substance: HALOPERIDOL DECANOATE
     Indication: BIPOLAR DISORDER
     Route: 030
     Dates: start: 201401, end: 201409

REACTIONS (1)
  - Adverse event [Unknown]

NARRATIVE: CASE EVENT DATE: 201409
